FAERS Safety Report 11191854 (Version 1)
Quarter: 2015Q2

REPORT INFORMATION
  Report Type: Spontaneous
  Country: US (occurrence: US)
  Receive Date: 20150616
  Receipt Date: 20150616
  Transmission Date: 20150821
  Serious: Yes (Other)
  Sender: FDA-Public Use
  Company Number: US-SA-POMP-1001625

PATIENT
  Age: 34 Year
  Sex: Female

DRUGS (15)
  1. LUMIZYME [Suspect]
     Active Substance: ALGLUCOSIDASE ALFA
     Indication: GLYCOGEN STORAGE DISEASE TYPE II
     Route: 042
     Dates: start: 20120613
  2. PRILOSEC [Concomitant]
     Active Substance: OMEPRAZOLE MAGNESIUM
     Dates: start: 20100517, end: 20101027
  3. PREDNISONE. [Concomitant]
     Active Substance: PREDNISONE
     Indication: INFUSION
     Dates: start: 20100517
  4. FLUOCINONIDE. [Concomitant]
     Active Substance: FLUOCINONIDE
     Indication: ECZEMA
     Dates: start: 20100708, end: 20101027
  5. GABAPENTIN. [Concomitant]
     Active Substance: GABAPENTIN
     Dates: start: 20100517, end: 20110105
  6. ATENOLOL. [Concomitant]
     Active Substance: ATENOLOL
     Dates: start: 20100517, end: 20100721
  7. TRIAMCINOLONE ACETONIDE. [Concomitant]
     Active Substance: TRIAMCINOLONE ACETONIDE
     Indication: ECZEMA
     Dates: start: 20100517, end: 20100721
  8. WOOL ALCOHOLS/BISABOLOL/CERESIN/PARAFFIN SOFT/PARAFFIN, LIQUID [Concomitant]
     Indication: ECZEMA
     Dates: start: 20100517, end: 20100721
  9. IBUPROFEN. [Concomitant]
     Active Substance: IBUPROFEN
     Indication: INFUSION
     Dates: start: 20100517, end: 20100709
  10. DIPHENHYDRAMINE HYDROCHLORIDE. [Concomitant]
     Active Substance: DIPHENHYDRAMINE HYDROCHLORIDE
     Indication: INFUSION
     Dates: start: 20100517
  11. TYLENOL [Concomitant]
     Active Substance: ACETAMINOPHEN
     Indication: INFUSION
     Dates: start: 20100709
  12. MYOZYME [Suspect]
     Active Substance: ALGLUCOSIDASE ALFA
     Indication: GLYCOGEN STORAGE DISEASE TYPE II
     Dosage: UNK UNK, UNK
     Route: 042
     Dates: start: 20060523
  13. LABETALOL HYDROCHLORIDE. [Concomitant]
     Active Substance: LABETALOL HYDROCHLORIDE
     Dates: start: 20100721
  14. PROMETHAZINE HYDROCHLORIDE. [Concomitant]
     Active Substance: PROMETHAZINE HYDROCHLORIDE
     Indication: NAUSEA
     Dates: start: 20100517, end: 20101027
  15. HYDROCHLOROTHIAZIDE. [Concomitant]
     Active Substance: HYDROCHLOROTHIAZIDE
     Dates: start: 20100517

REACTIONS (7)
  - Sinus tachycardia [Unknown]
  - Orthopnoea [Unknown]
  - Gait disturbance [Unknown]
  - Fall [Unknown]
  - Respiratory distress [Unknown]
  - Muscular weakness [Unknown]
  - Sleep apnoea syndrome [Unknown]

NARRATIVE: CASE EVENT DATE: 20060905
